FAERS Safety Report 7076914-3 (Version None)
Quarter: 2010Q4

REPORT INFORMATION
  Report Type: 
  Country: None (occurrence: None)
  Receive Date: 20101101
  Receipt Date: 20101025
  Transmission Date: 20110411
  Serious: Yes (Life-Threatening, Hospitalization)
  Sender: FDA-Public Use
  Company Number: GB-TEVA-228493ISR

PATIENT
  Sex: Male

DRUGS (20)
  1. PREDNISOLONE [Suspect]
     Indication: PROSTATE CANCER METASTATIC
     Route: 048
     Dates: start: 20081027
  2. PLACEBO [Suspect]
     Indication: PROSTATE CANCER METASTATIC
     Route: 048
     Dates: start: 20081027, end: 20090406
  3. MORPHINE SULFATE [Suspect]
     Indication: CANCER PAIN
     Route: 048
     Dates: start: 20080101
  4. OXYTETRACYCLINE [Concomitant]
     Route: 048
     Dates: start: 20090401, end: 20090409
  5. DEXAMETHASONE [Concomitant]
     Indication: SPINAL CORD COMPRESSION
     Route: 048
     Dates: start: 20090319
  6. LANSOPRAZOLE [Concomitant]
     Route: 048
     Dates: start: 20090319
  7. DORBANEX [Concomitant]
     Indication: CONSTIPATION
     Route: 048
     Dates: start: 20081027
  8. SIMVASTATIN [Concomitant]
     Indication: HYPERCHOLESTEROLAEMIA
  9. LEUPROLIDE ACETATE [Concomitant]
     Dates: start: 20050310
  10. DICLOFENAC SODIUM [Concomitant]
     Dates: start: 20090319
  11. ZOPICLONE [Concomitant]
     Indication: SPINAL CORD COMPRESSION
     Route: 048
     Dates: start: 20090319
  12. GABAPENTIN [Concomitant]
     Indication: SPINAL CORD COMPRESSION
     Dates: start: 20090323
  13. CHLORHEXIDINE GLUCONATE [Concomitant]
     Indication: SPINAL CORD COMPRESSION
     Dates: start: 20090319
  14. BENZYDAMINE HYDROCHLORIDE [Concomitant]
     Indication: SPINAL CORD COMPRESSION
     Dates: start: 20090323
  15. CALCIUM D3 [Concomitant]
     Indication: CALCIUM DEFICIENCY
     Route: 048
     Dates: start: 20090323
  16. SALBUTAMOL [Concomitant]
     Indication: WHEEZING
     Route: 055
     Dates: start: 20090402
  17. ACECLOFENAC [Concomitant]
     Route: 061
     Dates: start: 20090402
  18. AUGMENTIN '125' [Concomitant]
     Indication: LOWER RESPIRATORY TRACT INFECTION
  19. PANADEINE CO [Concomitant]
     Indication: CANCER PAIN
  20. VENLAFAXINE [Concomitant]

REACTIONS (3)
  - CARDIAC FAILURE CONGESTIVE [None]
  - NARCOTIC INTOXICATION [None]
  - RESPIRATORY TRACT INFECTION [None]
